FAERS Safety Report 18731793 (Version 1)
Quarter: 2021Q1

REPORT INFORMATION
  Report Type: Spontaneous
  Country: US (occurrence: US)
  Receive Date: 20210112
  Receipt Date: 20210112
  Transmission Date: 20210419
  Serious: Yes (Death, Hospitalization)
  Sender: FDA-Public Use
  Company Number: US-PFIZER INC-2021015021

PATIENT
  Age: 48 Year
  Sex: Male

DRUGS (7)
  1. NIFEDIPINE. [Suspect]
     Active Substance: NIFEDIPINE
     Dosage: UNK, INGESTION
     Route: 048
  2. HYDROXYZINE HCL [Suspect]
     Active Substance: HYDROXYZINE HYDROCHLORIDE
     Dosage: UNK, INGESTION
     Route: 048
  3. ATORVASTATIN CALCIUM. [Suspect]
     Active Substance: ATORVASTATIN CALCIUM
     Dosage: UNK, INGESTION
     Route: 048
  4. OXYBUTYNIN. [Suspect]
     Active Substance: OXYBUTYNIN CHLORIDE
     Dosage: UNK, INGESTION
     Route: 048
  5. BACLOFEN. [Suspect]
     Active Substance: BACLOFEN
     Dosage: UNK, INGESTION
     Route: 048
  6. VENLAFAXINE HCL [Suspect]
     Active Substance: VENLAFAXINE HYDROCHLORIDE
     Dosage: UNK, INGESTION
     Route: 048
  7. LISINOPRIL. [Suspect]
     Active Substance: LISINOPRIL
     Dosage: UNK, INGESTION
     Route: 048

REACTIONS (3)
  - Respiratory arrest [Fatal]
  - Cardiac arrest [Fatal]
  - Completed suicide [Fatal]

NARRATIVE: CASE EVENT DATE: 2019
